FAERS Safety Report 25596274 (Version 2)
Quarter: 2025Q3

REPORT INFORMATION
  Report Type: Spontaneous
  Country: CA (occurrence: CA)
  Receive Date: 20250723
  Receipt Date: 20250811
  Transmission Date: 20251020
  Serious: Yes (Hospitalization, Other)
  Sender: SANDOZ
  Company Number: CA-SANDOZ-SDZ2025CA052195

PATIENT
  Age: 44 Year
  Sex: Male

DRUGS (5)
  1. BENZTROPINE [Suspect]
     Active Substance: BENZTROPINE
     Indication: Schizophrenia
     Dosage: 6 MG, QD
     Route: 065
  2. BENZTROPINE [Suspect]
     Active Substance: BENZTROPINE
     Route: 065
  3. CLONAZEPAM [Suspect]
     Active Substance: CLONAZEPAM
     Indication: Schizophrenia
     Route: 065
  4. HALOPERIDOL [Suspect]
     Active Substance: HALOPERIDOL
     Indication: Schizophrenia
     Route: 030
  5. HALOPERIDOL [Suspect]
     Active Substance: HALOPERIDOL
     Route: 048

REACTIONS (3)
  - Akathisia [Recovered/Resolved]
  - Urinary retention [Recovering/Resolving]
  - Drug ineffective [Recovering/Resolving]
